FAERS Safety Report 8122935-9 (Version None)
Quarter: 2012Q1

REPORT INFORMATION
  Report Type: 
  Country: None (occurrence: None)
  Receive Date: 20120208
  Receipt Date: 20120201
  Transmission Date: 20120608
  Serious: Yes (Other)
  Sender: FDA-Public Use
  Company Number: US-PFIZER INC-2012028950

PATIENT
  Sex: Male

DRUGS (1)
  1. EFFEXOR XR [Suspect]
     Dosage: UNK

REACTIONS (8)
  - HEPATITIS B [None]
  - HAEMOCHROMATOSIS [None]
  - ATTENTION DEFICIT/HYPERACTIVITY DISORDER [None]
  - SLEEP APNOEA SYNDROME [None]
  - DIARRHOEA [None]
  - HYPERLIPIDAEMIA [None]
  - ANXIETY [None]
  - SUICIDAL IDEATION [None]
